FAERS Safety Report 8841733 (Version 2)
Quarter: 2012Q4

REPORT INFORMATION
  Report Type: 
  Country: US (occurrence: None)
  Receive Date: 20121011
  Receipt Date: 20121127
  Transmission Date: 20130627
  Serious: Yes (Other)
  Sender: FDA-Public Use
  Company Number: 2012-003614

PATIENT
  Age: 61 Year
  Sex: Female
  Weight: 56.7 kg

DRUGS (1)
  1. ATELVIA [Suspect]
     Indication: BONE DENSITY DECREASED
     Route: 048
     Dates: start: 201208

REACTIONS (3)
  - Small intestinal obstruction [None]
  - Inflammatory bowel disease [None]
  - Ascites [None]
